FAERS Safety Report 10094363 (Version 2)
Quarter: 2014Q2

REPORT INFORMATION
  Report Type: Spontaneous
  Country: IT (occurrence: IT)
  Receive Date: 20140422
  Receipt Date: 20140516
  Transmission Date: 20141212
  Serious: Yes (Other)
  Sender: FDA-Public Use
  Company Number: IT-MYLANLABS-2014S1008353

PATIENT
  Age: 28 Year
  Sex: Female

DRUGS (2)
  1. DELORAZEPAM [Suspect]
     Indication: PRODUCT USED FOR UNKNOWN INDICATION
     Dosage: 40 ML TOTAL
     Route: 048
     Dates: start: 20140311, end: 20140311
  2. ALPRAZOLAM [Suspect]
     Indication: PRODUCT USED FOR UNKNOWN INDICATION
     Dosage: 40 DF TOTAL
     Route: 048
     Dates: start: 20140311, end: 20140311

REACTIONS (4)
  - Loss of consciousness [Unknown]
  - Overdose [Unknown]
  - Suicide attempt [Unknown]
  - Drug abuse [Unknown]
